FAERS Safety Report 7135431-2 (Version None)
Quarter: 2010Q4

REPORT INFORMATION
  Report Type: 
  Country: None (occurrence: None)
  Receive Date: 20101203
  Receipt Date: 20101124
  Transmission Date: 20110411
  Serious: Yes (Hospitalization, Other)
  Sender: FDA-Public Use
  Company Number: US-TEVA-256988USA

PATIENT
  Sex: Male

DRUGS (6)
  1. FLUOROURACIL [Suspect]
     Indication: HEAD AND NECK CANCER
     Route: 042
     Dates: start: 20101101, end: 20101101
  2. CETUXIMAB [Suspect]
     Indication: HEAD AND NECK CANCER
     Route: 042
     Dates: start: 20101108, end: 20101108
  3. CISPLATIN [Suspect]
     Indication: HEAD AND NECK CANCER
     Route: 042
     Dates: start: 20101101, end: 20101101
  4. MACROGOL [Concomitant]
     Indication: CONSTIPATION
  5. METRONIDAZOLE [Concomitant]
     Indication: CLOSTRIDIUM DIFFICILE COLITIS
     Dosage: 3X/DAY FOR 13 DAYS
  6. DOCUSATE SODIUM [Concomitant]
     Indication: CONSTIPATION
     Dosage: 2X/DAY AS NEEDED

REACTIONS (3)
  - BLOOD CREATININE INCREASED [None]
  - CLOSTRIDIUM DIFFICILE COLITIS [None]
  - MUCOSAL INFLAMMATION [None]
